FAERS Safety Report 5786807-7 (Version None)
Quarter: 2008Q2

REPORT INFORMATION
  Report Type: 
  Country: None (occurrence: None)
  Receive Date: 20080618
  Receipt Date: 20080609
  Transmission Date: 20081010
  Serious: No
  Sender: FDA-Public Use
  Company Number: 2008-178834-NL

PATIENT
  Age: 26 Year
  Sex: Female

DRUGS (5)
  1. NUVARING [Suspect]
     Dosage: DF VAGINAL
     Route: 067
  2. ALBUTEROL [Concomitant]
  3. FLUTICASONE PROPIONATE [Concomitant]
  4. CLONAZEPAM [Concomitant]
  5. LORAZEPAM [Concomitant]

REACTIONS (10)
  - ANOREXIA [None]
  - ANXIETY [None]
  - DIZZINESS [None]
  - FLUSHING [None]
  - HYPERHIDROSIS [None]
  - INSOMNIA [None]
  - PALPITATIONS [None]
  - PANIC REACTION [None]
  - SUICIDAL IDEATION [None]
  - TREMOR [None]
